FAERS Safety Report 22380889 (Version 1)
Quarter: 2023Q2

REPORT INFORMATION
  Report Type: Report from Study
  Country: CA (occurrence: CA)
  Receive Date: 20230530
  Receipt Date: 20230530
  Transmission Date: 20230722
  Serious: Yes (Other)
  Sender: FDA-Public Use
  Company Number: CA-JNJFOC-20230564316

PATIENT
  Age: 17 Year
  Sex: Female
  Weight: 94 kg

DRUGS (1)
  1. REMICADE [Suspect]
     Active Substance: INFLIXIMAB
     Indication: Colitis ulcerative
     Dosage: THE PATIENT RECEIVED 19TH REMICADE INFUSION ON 25-MAY-2023 AND PARTIAL MAYO WAS COMPLETED.
     Route: 041
     Dates: start: 20210726

REACTIONS (2)
  - Haematochezia [Not Recovered/Not Resolved]
  - General physical health deterioration [Unknown]

NARRATIVE: CASE EVENT DATE: 20230524
